FAERS Safety Report 20375087 (Version 1)
Quarter: 2022Q1

REPORT INFORMATION
  Report Type: Spontaneous
  Country: US (occurrence: None)
  Receive Date: 20220124
  Receipt Date: 20220124
  Transmission Date: 20220423
  Serious: Yes (Hospitalization)
  Sender: FDA-Public Use
  Company Number: None

PATIENT
  Age: 67 Year
  Sex: Male
  Weight: 76 kg

DRUGS (1)
  1. AMOXICILLIN\CLAVULANIC ACID [Suspect]
     Active Substance: AMOXICILLIN\CLAVULANIC ACID
     Dosage: FREQUENCY : TWICE A DAY;?
     Route: 048
     Dates: start: 20211213, end: 20220118

REACTIONS (9)
  - Acute kidney injury [None]
  - Nausea [None]
  - Vomiting [None]
  - Weight decreased [None]
  - Hypophagia [None]
  - Gastrointestinal stoma complication [None]
  - Product residue present [None]
  - Incorrect dose administered [None]
  - Prescribed overdose [None]

NARRATIVE: CASE EVENT DATE: 20220119
